FAERS Safety Report 16851810 (Version 1)
Quarter: 2019Q3

REPORT INFORMATION
  Report Type: Report from Study
  Country: US (occurrence: US)
  Receive Date: 20190925
  Receipt Date: 20190925
  Transmission Date: 20191005
  Serious: Yes (Other)
  Sender: FDA-Public Use
  Company Number: US-GILEAD-2019-0430271

PATIENT
  Age: 83 Year
  Sex: Male

DRUGS (19)
  1. AMBRISENTAN [Suspect]
     Active Substance: AMBRISENTAN
     Indication: PULMONARY HYPERTENSION
     Dosage: 5 MG, QD
     Route: 065
  2. CLONAZEPAM. [Concomitant]
     Active Substance: CLONAZEPAM
  3. HYDROXYZINE HCL [Concomitant]
     Active Substance: HYDROXYZINE HYDROCHLORIDE
  4. HYDRALAZINE [Concomitant]
     Active Substance: HYDRALAZINE HYDROCHLORIDE
  5. POTASSIUM [Concomitant]
     Active Substance: POTASSIUM
  6. ACETAMINOPHEN. [Concomitant]
     Active Substance: ACETAMINOPHEN
  7. FUROSEMIDE. [Concomitant]
     Active Substance: FUROSEMIDE
  8. VOLTAREN [DICLOFENAC EPOLAMINE] [Concomitant]
     Active Substance: DICLOFENAC EPOLAMINE
  9. XARELTO [Concomitant]
     Active Substance: RIVAROXABAN
  10. CENTRUM SILVER +50 [Concomitant]
  11. OMEGA-3 [DOCOSAHEXAENOIC ACID;EICOSAPENTAENOIC ACID] [Concomitant]
     Active Substance: DOCONEXENT\ICOSAPENT
  12. ATENOLOL. [Concomitant]
     Active Substance: ATENOLOL
  13. ISOSORBIDE DINITRATE. [Concomitant]
     Active Substance: ISOSORBIDE DINITRATE
  14. MAGNESIUM [Concomitant]
     Active Substance: MAGNESIUM
  15. CORTIZONE-10 [HYDROCORTISONE ACETATE] [Concomitant]
  16. FISH OIL [Concomitant]
     Active Substance: FISH OIL
  17. LUTEIN [XANTOFYL] [Concomitant]
  18. MONTELUKAST [Concomitant]
     Active Substance: MONTELUKAST SODIUM
  19. ZINC. [Concomitant]
     Active Substance: ZINC

REACTIONS (2)
  - Nephrolithiasis [Not Recovered/Not Resolved]
  - Intentional dose omission [Recovered/Resolved]
